FAERS Safety Report 6645578-2 (Version None)
Quarter: 2010Q1

REPORT INFORMATION
  Report Type: 
  Country: None (occurrence: None)
  Receive Date: 20100319
  Receipt Date: 20100319
  Transmission Date: 20100710
  Serious: Yes (Other)
  Sender: FDA-Public Use
  Company Number: None

PATIENT
  Age: 45 Year
  Sex: Female
  Weight: 58.9676 kg

DRUGS (1)
  1. RESTASIS [Suspect]
     Indication: DRY EYE
     Dosage: ONE DROP TWICE DAILY OPHTHALMIC
     Route: 047
     Dates: start: 20100201, end: 20100221

REACTIONS (4)
  - EYE PRURITUS [None]
  - NASAL DISCOMFORT [None]
  - NASAL MUCOSAL DISORDER [None]
  - URTICARIA [None]
